FAERS Safety Report 8611105-3 (Version None)
Quarter: 2012Q3

REPORT INFORMATION
  Report Type: 
  Country: None (occurrence: None)
  Receive Date: 20120822
  Receipt Date: 20120105
  Transmission Date: 20120928
  Serious: Yes (Other)
  Sender: FDA-Public Use
  Company Number: US-009507513-1208USA007176

PATIENT

DRUGS (8)
  1. MAGNESIUM HYDROXIDE TAB [Concomitant]
  2. COPEGUS [Suspect]
     Dosage: 1200 MG DEVIDED DOSES
  3. NEURONTIN [Concomitant]
  4. VICTRELIS [Suspect]
     Indication: HEPATITIS C
     Dosage: 4 DF, TID
     Route: 048
     Dates: start: 20110910
  5. PEGINTERFERON ALFA-2A [Suspect]
     Indication: HEPATITIS C
     Dosage: 180 MICROGRAM, QW
     Dates: start: 20110820
  6. COPEGUS [Suspect]
     Indication: HEPATITIS C
     Dosage: 1000 MG DEVIDED DOSES
     Dates: start: 20110820
  7. COPEGUS [Suspect]
     Dosage: 800 MG DEVIDED DOSES
  8. ZOLOFT [Concomitant]

REACTIONS (5)
  - ABDOMINAL DISTENSION [None]
  - JOINT SWELLING [None]
  - INFLUENZA [None]
  - WEIGHT INCREASED [None]
  - SWELLING FACE [None]
